FAERS Safety Report 4423383-5 (Version None)
Quarter: 2004Q3

REPORT INFORMATION
  Report Type: 
  Country: None (occurrence: None)
  Receive Date: 20040806
  Receipt Date: 20040517
  Transmission Date: 20050211
  Serious: Yes (Hospitalization, Other)
  Sender: FDA-Public Use
  Company Number: 2004033103

PATIENT

DRUGS (1)
  1. ZOLOFT [Suspect]
     Indication: STRESS SYMPTOMS
     Dosage: 100 MG (100 MG 1 IN 1 D) ORAL
     Route: 048

REACTIONS (7)
  - DRUG EXPOSURE DURING PREGNANCY [None]
  - DRUG WITHDRAWAL SYNDROME NEONATAL [None]
  - HYPERSENSITIVITY [None]
  - HYPOGLYCAEMIA NEONATAL [None]
  - NEONATAL APNOEIC ATTACK [None]
  - NEONATAL DISORDER [None]
  - UNRESPONSIVE TO PAIN STIMULI [None]
